FAERS Safety Report 7944923-5 (Version None)
Quarter: 2011Q4

REPORT INFORMATION
  Report Type: 
  Country: None (occurrence: None)
  Receive Date: 20111129
  Receipt Date: 20111118
  Transmission Date: 20120403
  Serious: Yes (Other)
  Sender: FDA-Public Use
  Company Number: PHHY2011AU101865

PATIENT
  Sex: Male

DRUGS (2)
  1. EXJADE [Suspect]
     Indication: IRON OVERLOAD
     Dosage: 2000 MG, UNK
     Route: 048
     Dates: start: 20090901
  2. EXJADE [Suspect]
     Dosage: 2000 MG, UNK
     Route: 048
     Dates: start: 20110501

REACTIONS (7)
  - DIARRHOEA [None]
  - ASTHENIA [None]
  - DECREASED APPETITE [None]
  - NAUSEA [None]
  - MUSCLE ATROPHY [None]
  - BONE PAIN [None]
  - DYSGEUSIA [None]
